FAERS Safety Report 25676458 (Version 1)
Quarter: 2025Q3

REPORT INFORMATION
  Report Type: Spontaneous
  Country: US (occurrence: US)
  Receive Date: 20250813
  Receipt Date: 20250813
  Transmission Date: 20251021
  Serious: No
  Sender: GALDERMA
  Company Number: US-GALDERMA-US2025009870

PATIENT

DRUGS (1)
  1. NEMLUVIO [Suspect]
     Active Substance: NEMOLIZUMAB-ILTO
     Indication: Neurodermatitis
     Route: 058

REACTIONS (6)
  - Rash papular [Unknown]
  - Skin discharge [Unknown]
  - Rash macular [Unknown]
  - Skin exfoliation [Unknown]
  - Neurodermatitis [Unknown]
  - Drug ineffective [Unknown]
